FAERS Safety Report 6186910-6 (Version None)
Quarter: 2009Q2

REPORT INFORMATION
  Report Type: 
  Country: None (occurrence: None)
  Receive Date: 20090508
  Receipt Date: 20090508
  Transmission Date: 20091009
  Serious: Yes (Life-Threatening, Hospitalization, Other)
  Sender: FDA-Public Use
  Company Number: None

PATIENT
  Age: 64 Year
  Sex: Male
  Weight: 94 kg

DRUGS (2)
  1. METFORMIN HCL [Suspect]
  2. DIGOXIN [Suspect]

REACTIONS (8)
  - ANOREXIA [None]
  - ASTHENIA [None]
  - BLOOD POTASSIUM INCREASED [None]
  - INFLUENZA [None]
  - INTERNATIONAL NORMALISED RATIO INCREASED [None]
  - NAUSEA [None]
  - RENAL FAILURE [None]
  - VOMITING [None]
